FAERS Safety Report 16322539 (Version 2)
Quarter: 2019Q2

REPORT INFORMATION
  Report Type: Report from Study
  Country: US (occurrence: US)
  Receive Date: 20190516
  Receipt Date: 20190601
  Transmission Date: 20190711
  Serious: Yes (Other)
  Sender: FDA-Public Use
  Company Number: US-TEVA-2019-US-1049548

PATIENT
  Age: 67 Year
  Sex: Male

DRUGS (11)
  1. LEUCOVORIN. [Suspect]
     Active Substance: LEUCOVORIN
     Indication: RECTAL CANCER
     Route: 065
  2. IRINOTECAN [Suspect]
     Active Substance: IRINOTECAN
     Indication: RECTAL CANCER
     Dosage: ADMINISTERED AS A PART OF FOLFIRI REGIMEN
     Route: 065
  3. ZALTRAP [Suspect]
     Active Substance: ZIV-AFLIBERCEPT
     Indication: RECTAL CANCER
     Dosage: FIRST AND LAST CYCLE, NUMBER OF SEPARATE DOSAGES: 1
     Route: 065
  4. CAPECITABINE. [Concomitant]
     Active Substance: CAPECITABINE
     Indication: RECTAL CANCER
     Route: 065
  5. FOLINIC ACID [Concomitant]
     Active Substance: LEUCOVORIN
     Indication: RECTAL CANCER
     Route: 065
  6. FLUOROURACIL. [Suspect]
     Active Substance: FLUOROURACIL
     Dosage: ADMINISTERED AS A PART OF ZFOLFIRI REGIMEN, FIRST CYCLE
     Route: 065
  7. FLUOROURACIL. [Suspect]
     Active Substance: FLUOROURACIL
     Dosage: ADMINISTERED AS A PART OF ZFOLFIRI REGIMEN, LAST CYCLE
     Route: 065
  8. IRINOTECAN [Suspect]
     Active Substance: IRINOTECAN
     Dosage: ADMINISTERED AS A PART OF ZFOLFIRI REGIMEN, FIRST CYCLE
     Route: 065
  9. IRINOTECAN [Suspect]
     Active Substance: IRINOTECAN
     Dosage: ADMINISTERED AS A PART OF ZFOLFIRI REGIMEN, LAST CYCLE
     Route: 065
  10. CETUXIMAB. [Suspect]
     Active Substance: CETUXIMAB
     Indication: RECTAL CANCER
     Route: 065
  11. FLUOROURACIL. [Suspect]
     Active Substance: FLUOROURACIL
     Indication: RECTAL CANCER
     Dosage: ADMINISTERED AS A PART OF FOLFIRI REGIMEN
     Route: 065

REACTIONS (4)
  - K-ras gene mutation [Unknown]
  - Pneumonia [Unknown]
  - Toxicity to various agents [Unknown]
  - Neutropenic sepsis [Unknown]
